FAERS Safety Report 4777150-3 (Version None)
Quarter: 2005Q3

REPORT INFORMATION
  Report Type: 
  Country: None (occurrence: None)
  Receive Date: 20050923
  Receipt Date: 20050912
  Transmission Date: 20060218
  Serious: Yes (Hospitalization)
  Sender: FDA-Public Use
  Company Number: FR-ROCHE-417300

PATIENT
  Age: 25 Year
  Sex: Female

DRUGS (8)
  1. DACLIZUMAB [Suspect]
     Route: 042
     Dates: start: 20050615, end: 20050615
  2. DACLIZUMAB [Suspect]
     Route: 042
     Dates: start: 20050630, end: 20050630
  3. MYCOPHENOLATE MOFETIL [Suspect]
     Route: 048
     Dates: start: 20050614, end: 20050911
  4. MYCOPHENOLATE MOFETIL [Suspect]
     Route: 048
     Dates: start: 20050912
  5. CYCLOSPORINE [Suspect]
     Indication: RENAL TRANSPLANT
     Route: 048
     Dates: start: 20050615
  6. PREDNISOLONE SODIUM METASULPHOBENZOATE [Suspect]
     Indication: RENAL TRANSPLANT
     Route: 048
     Dates: start: 20050614
  7. PREDNISOLONE SODIUM METASULPHOBENZOATE [Suspect]
     Route: 048
  8. SIROLIMUS [Suspect]
     Route: 048
     Dates: start: 20050907

REACTIONS (2)
  - CYTOMEGALOVIRUS INFECTION [None]
  - FEBRILE NEUTROPENIA [None]
